FAERS Safety Report 4667616-9 (Version None)
Quarter: 2005Q2

REPORT INFORMATION
  Report Type: 
  Country: None (occurrence: None)
  Receive Date: 20050502
  Receipt Date: 20040517
  Transmission Date: 20051028
  Serious: Yes (Life-Threatening, Hospitalization)
  Sender: FDA-Public Use
  Company Number: PHEH2004US05505

PATIENT
  Sex: Female

DRUGS (2)
  1. LOTREL [Suspect]
     Dates: start: 20031013, end: 20040304
  2. ADVAIR DISKUS 100/50 [Suspect]
     Dates: start: 20040301, end: 20040304

REACTIONS (3)
  - DYSPNOEA [None]
  - LARYNGEAL OEDEMA [None]
  - OROPHARYNGEAL SWELLING [None]
